FAERS Safety Report 12331503 (Version 1)
Quarter: 2016Q2

REPORT INFORMATION
  Report Type: Spontaneous
  Country: TR (occurrence: TR)
  Receive Date: 20160504
  Receipt Date: 20160504
  Transmission Date: 20160815
  Serious: Yes (Hospitalization, Other)
  Sender: FDA-Public Use
  Company Number: TR-GLAXOSMITHKLINE-TR2016GSK061649

PATIENT
  Age: 27 Year
  Sex: Female

DRUGS (1)
  1. BUPROPION. [Suspect]
     Active Substance: BUPROPION
     Indication: EX-TOBACCO USER
     Dosage: 150 MG, QD
     Route: 065

REACTIONS (7)
  - Skin lesion [Unknown]
  - Angioedema [Unknown]
  - Urticaria [Unknown]
  - Erythema [Unknown]
  - Lip swelling [Unknown]
  - Papule [Unknown]
  - Rash pruritic [Unknown]
